FAERS Safety Report 5540634-4 (Version None)
Quarter: 2007Q4

REPORT INFORMATION
  Report Type: 
  Country: None (occurrence: None)
  Receive Date: 20071129
  Receipt Date: 20070814
  Transmission Date: 20080405
  Serious: Yes (Other)
  Sender: FDA-Public Use
  Company Number: US200707005555

PATIENT
  Age: 35 Year
  Sex: Male
  Weight: 106.6 kg

DRUGS (2)
  1. ZYPREXA [Suspect]
     Indication: BIPOLAR DISORDER
     Dates: start: 20061201, end: 20070501
  2. EFFEXOR [Concomitant]

REACTIONS (1)
  - DIABETES MELLITUS [None]
